FAERS Safety Report 5367344-0 (Version None)
Quarter: 2007Q2

REPORT INFORMATION
  Report Type: 
  Country: None (occurrence: None)
  Receive Date: 20070622
  Receipt Date: 20060522
  Transmission Date: 20071010
  Serious: No
  Sender: FDA-Public Use
  Company Number: US-ASTRAZENECA-2006UW09937

PATIENT
  Sex: Female
  Weight: 72.1 kg

DRUGS (5)
  1. PULMICORT [Suspect]
     Indication: COUGH
     Route: 055
     Dates: start: 20060401
  2. FLONASE [Concomitant]
  3. PRILOSEC [Concomitant]
  4. ATENOLOL [Concomitant]
  5. LISINOPRIL [Concomitant]

REACTIONS (2)
  - INCREASED UPPER AIRWAY SECRETION [None]
  - WHEEZING [None]
